FAERS Safety Report 4519240-6 (Version None)
Quarter: 2004Q4

REPORT INFORMATION
  Report Type: 
  Country: None (occurrence: None)
  Receive Date: 20041201
  Receipt Date: 20041115
  Transmission Date: 20050328
  Serious: Yes (Hospitalization)
  Sender: FDA-Public Use
  Company Number: 8008053

PATIENT
  Age: 73 Year
  Sex: Male
  Weight: 60 kg

DRUGS (9)
  1. KEPPRA [Suspect]
     Indication: EPILEPSY
     Dosage: 3000MG/D PO
     Route: 048
     Dates: start: 20040203, end: 20040607
  2. MYLEPSIN [Concomitant]
  3. DYTIDE [Concomitant]
  4. BELOC ZOK [Concomitant]
  5. DELIX [Concomitant]
  6. ASPIRIN [Concomitant]
  7. XIMOVAN [Concomitant]
  8. ZYLORIC [Concomitant]
  9. . [Concomitant]

REACTIONS (14)
  - ATAXIA [None]
  - BLOOD PRESSURE DECREASED [None]
  - CAROTID ARTERY STENOSIS [None]
  - CONVULSION [None]
  - DEMENTIA [None]
  - ENURESIS [None]
  - FATIGUE [None]
  - HEPATITIS A [None]
  - HEPATITIS B [None]
  - PHLEBOTHROMBOSIS [None]
  - PSYCHOTIC DISORDER [None]
  - TEARFULNESS [None]
  - THROMBOCYTOPENIA [None]
  - TREMOR [None]
